FAERS Safety Report 7532283-3 (Version None)
Quarter: 2011Q2

REPORT INFORMATION
  Report Type: 
  Country: None (occurrence: None)
  Receive Date: 20110607
  Receipt Date: 20110607
  Transmission Date: 20111010
  Serious: Yes (Hospitalization)
  Sender: FDA-Public Use
  Company Number: None

PATIENT
  Age: 23 Year
  Sex: Female
  Weight: 48.9 kg

DRUGS (16)
  1. FOLFOX [Suspect]
     Indication: COLORECTAL CANCER
     Dosage: EVERY 2 WEEKS IV
     Route: 042
     Dates: start: 20110516
  2. FOLFOX [Suspect]
     Indication: COLORECTAL CANCER
     Dosage: EVERY 2 WEEKS IV
     Route: 042
     Dates: start: 20110415
  3. FOLFOX [Suspect]
     Indication: COLORECTAL CANCER
     Dosage: EVERY 2 WEEKS IV
     Route: 042
     Dates: start: 20110521
  4. LORTAB [Concomitant]
  5. MS CONTIN [Concomitant]
  6. TRIPLE MIX [Concomitant]
  7. MEGACE [Concomitant]
  8. ELMA CREAM [Concomitant]
  9. SENNA [Concomitant]
  10. ZOFRAN [Concomitant]
  11. AMBIEN [Concomitant]
  12. DULCOLAX [Concomitant]
  13. RAD001, SEE ATTACHMENT [Suspect]
     Indication: COLORECTAL CANCER
     Dosage: EVERY DAY PO
     Route: 048
     Dates: start: 20110415, end: 20110602
  14. ATIVAN [Concomitant]
  15. COMPAZINE [Concomitant]
  16. MULTI VIT [Concomitant]

REACTIONS (4)
  - PROCTALGIA [None]
  - FEBRILE NEUTROPENIA [None]
  - BACK PAIN [None]
  - MUCOSAL INFLAMMATION [None]
